FAERS Safety Report 25616142 (Version 2)
Quarter: 2025Q3

REPORT INFORMATION
  Report Type: Spontaneous
  Country: JP (occurrence: JP)
  Receive Date: 20250729
  Receipt Date: 20250817
  Transmission Date: 20251021
  Serious: Yes (Other)
  Sender: AUROBINDO
  Company Number: JP-MLMSERVICE-20250715-PI571290-00306-2

PATIENT
  Age: 66 Year
  Sex: Male

DRUGS (9)
  1. MELPHALAN [Suspect]
     Active Substance: MELPHALAN
     Indication: Product used for unknown indication
     Dosage: 40 MILLIGRAM/SQ. METER, ONCE A DAY (DAYS -3 TO -2)
     Route: 065
  2. MELPHALAN [Suspect]
     Active Substance: MELPHALAN
     Indication: Acute myeloid leukaemia
  3. MELPHALAN [Suspect]
     Active Substance: MELPHALAN
     Indication: Haemophagocytic lymphohistiocytosis
  4. TACROLIMUS [Suspect]
     Active Substance: TACROLIMUS
     Indication: Immunosuppressant drug therapy
     Route: 065
  5. METHOTREXATE [Suspect]
     Active Substance: METHOTREXATE
     Indication: Prophylaxis against graft versus host disease
     Route: 065
  6. FLUDARABINE [Suspect]
     Active Substance: FLUDARABINE PHOSPHATE
     Indication: Product used for unknown indication
     Dosage: 30 MILLIGRAM/SQ. METER, ONCE A DAY
     Route: 065
  7. BUSULFAN [Suspect]
     Active Substance: BUSULFAN
     Indication: Product used for unknown indication
     Dosage: 3.2 MILLIGRAM/KILOGRAM, ONCE A DAY
     Route: 065
  8. CYCLOSPORINE [Suspect]
     Active Substance: CYCLOSPORINE
     Indication: Prophylaxis against graft versus host disease
     Route: 065
  9. PREDNISOLONE [Suspect]
     Active Substance: PREDNISOLONE
     Indication: Immunosuppressant drug therapy
     Route: 065

REACTIONS (2)
  - Epstein-Barr virus infection reactivation [Recovered/Resolved]
  - Drug ineffective [Unknown]
